FAERS Safety Report 6967419-6 (Version None)
Quarter: 2010Q3

REPORT INFORMATION
  Report Type: 
  Country: None (occurrence: None)
  Receive Date: 20100907
  Receipt Date: 20100830
  Transmission Date: 20110219
  Serious: Yes (Other)
  Sender: FDA-Public Use
  Company Number: DE-WYE-G04454709

PATIENT
  Sex: Female
  Weight: 80 kg

DRUGS (3)
  1. VENLAFAXINE HCL [Suspect]
     Indication: DEPRESSION
     Route: 048
     Dates: start: 20090217, end: 20090901
  2. VENLAFAXINE HCL [Suspect]
     Indication: ANXIETY
     Dosage: STEPWISE DOSE REDUCTION TO 9.375 MG (1/4 DOSE OF 37.5 MG TABLET/CAPSULE) PER DAY
     Route: 048
     Dates: start: 20090901
  3. ETHANOL [Suspect]
     Dosage: LOW ALCOHOL CONSUME DURING PREGNANCY
     Route: 048

REACTIONS (10)
  - AFFECT LABILITY [None]
  - DRUG EXPOSURE DURING PREGNANCY [None]
  - DRUG WITHDRAWAL SYNDROME [None]
  - GESTATIONAL HYPERTENSION [None]
  - OEDEMA PERIPHERAL [None]
  - PARAESTHESIA [None]
  - PHOTOPSIA [None]
  - PREMATURE LABOUR [None]
  - PREMATURE RUPTURE OF MEMBRANES [None]
  - UTERINE HYPOTONUS [None]
